FAERS Safety Report 8805003 (Version 4)
Quarter: 2012Q4

REPORT INFORMATION
  Report Type: Spontaneous
  Country: NL (occurrence: None)
  Receive Date: 20120917
  Receipt Date: 20121016
  Transmission Date: 20130627
  Serious: Yes (Other)
  Sender: FDA-Public Use
  Company Number: 2012-4102

PATIENT
  Age: 26 Year
  Sex: Male

DRUGS (2)
  1. SOMATULINE DEPOT [Suspect]
     Indication: ACROMEGALY
     Dosage: 1 in 28 D
     Route: 058
     Dates: start: 20091119, end: 201202
  2. SOMATULINE DEPOT [Suspect]
     Indication: ACROMEGALY
     Dosage: 1 in 28 D
     Route: 058
     Dates: start: 20120806

REACTIONS (4)
  - Gastrointestinal pain [None]
  - Pituitary tumour removal [None]
  - Drug ineffective [None]
  - Drug effect decreased [None]
